FAERS Safety Report 23836076 (Version 2)
Quarter: 2024Q2

REPORT INFORMATION
  Report Type: Spontaneous
  Country: FR (occurrence: FR)
  Receive Date: 20240509
  Receipt Date: 20240531
  Transmission Date: 20240716
  Serious: Yes (Life-Threatening, Hospitalization, Other)
  Sender: FDA-Public Use
  Company Number: FR-AFSSAPS-TS2024000356

PATIENT
  Age: 38 Year
  Sex: Male
  Weight: 74 kg

DRUGS (2)
  1. IBUPROFEN [Suspect]
     Active Substance: IBUPROFEN
     Indication: Product used for unknown indication
     Dosage: UNK
     Route: 065
  2. PALIPERIDONE PALMITATE [Suspect]
     Active Substance: PALIPERIDONE PALMITATE
     Indication: Schizophrenia
     Dosage: 350 MILLIGRAM (LAST DRUG ADMINISTERED ON 23-JAN-2024.)
     Route: 030
     Dates: start: 201906

REACTIONS (5)
  - Type 2 diabetes mellitus [Not Recovered/Not Resolved]
  - Dermo-hypodermitis [Recovering/Resolving]
  - Self-medication [Unknown]
  - Haemorrhoids [Unknown]
  - Off label use [Unknown]

NARRATIVE: CASE EVENT DATE: 20240302
